FAERS Safety Report 5094543-8 (Version None)
Quarter: 2006Q3

REPORT INFORMATION
  Report Type: 
  Country: None (occurrence: None)
  Receive Date: 20060830
  Receipt Date: 20060817
  Transmission Date: 20061208
  Serious: Yes (Hospitalization, Other)
  Sender: FDA-Public Use
  Company Number: 2006102669

PATIENT
  Sex: Female
  Weight: 61.6892 kg

DRUGS (6)
  1. CELEBREX [Suspect]
     Indication: ARTHRITIS
     Dosage: 300 MG (100 MG, 3 IN 1 D)
  2. NEURONTIN [Suspect]
     Indication: NEUROPATHY
     Dosage: 900 MG (300 MG, 3 IN 1 D)
     Dates: end: 20060101
  3. SYNTHROID [Suspect]
     Indication: THYROIDECTOMY
     Dates: start: 20060101
  4. CHOLESTEROL (CHOLESTEROL) [Suspect]
     Indication: BLOOD CHOLESTEROL DECREASED
  5. CALCIUM WITH VITAMIN D (CALCIUM PHOSPHATE, CALCIUM SODIUM LACTATE, ERG [Concomitant]
  6. CALCITROL (CALCIUM CARBONATE, ERGOCALCIFEROL, RETINOL) [Concomitant]

REACTIONS (11)
  - BLOOD CALCIUM DECREASED [None]
  - CONSTIPATION [None]
  - CRYING [None]
  - DEPRESSION [None]
  - DRY MOUTH [None]
  - DYSPEPSIA [None]
  - GASTROOESOPHAGEAL REFLUX DISEASE [None]
  - HEADACHE [None]
  - LARYNGITIS [None]
  - THYROID CANCER [None]
  - VOMITING [None]
